FAERS Safety Report 12779821 (Version 1)
Quarter: 2016Q3

REPORT INFORMATION
  Report Type: Spontaneous
  Country: US (occurrence: US)
  Receive Date: 20160922
  Receipt Date: 20160922
  Transmission Date: 20161109
  Serious: No
  Sender: FDA-Public Use
  Company Number: None

PATIENT
  Age: 68 Year
  Sex: Female

DRUGS (5)
  1. SOVALDI [Suspect]
     Active Substance: SOFOSBUVIR
     Indication: HEPATIC CIRRHOSIS
  2. SOVALDI [Suspect]
     Active Substance: SOFOSBUVIR
     Indication: CHRONIC HEPATITIS C
  3. SOVALDI [Suspect]
     Active Substance: SOFOSBUVIR
     Indication: TRANSAMINASES INCREASED
  4. SOVALDI [Suspect]
     Active Substance: SOFOSBUVIR
     Indication: BLOOD LACTATE DEHYDROGENASE INCREASED
  5. SOVALDI [Suspect]
     Active Substance: SOFOSBUVIR
     Indication: CHOLANGIOCARCINOMA

REACTIONS (1)
  - Insomnia [None]

NARRATIVE: CASE EVENT DATE: 20160922
